FAERS Safety Report 21242414 (Version 2)
Quarter: 2022Q4

REPORT INFORMATION
  Report Type: Other
  Country: DE (occurrence: DE)
  Receive Date: 20220823
  Receipt Date: 20221006
  Transmission Date: 20230112
  Serious: Yes (Other)
  Sender: FDA-Public Use
  Company Number: DE-MACLEODS PHARMACEUTICALS US LTD-MAC2022036922

PATIENT

DRUGS (24)
  1. VALSARTAN [Suspect]
     Active Substance: VALSARTAN
     Indication: Hypertension
     Dosage: UNK
     Route: 065
  2. CANDESARTAN [Suspect]
     Active Substance: CANDESARTAN
     Indication: Product used for unknown indication
     Dosage: UNK
     Route: 065
  3. CANDESARTAN [Suspect]
     Active Substance: CANDESARTAN
     Dosage: UNK UNK, QD (TABLET (UNCOATED, ORAL),PM (1 EVENING)
     Route: 065
  4. VALSARTAN [Suspect]
     Active Substance: VALSARTAN
     Indication: Hypertension
     Dosage: 160 MILLIGRAM, QD,TABLET (UNCOATED, ORAL) (ONCE IN THE MORNING)
     Route: 048
     Dates: start: 2015, end: 201807
  5. METOPROLOL SUCCINATE [Concomitant]
     Active Substance: METOPROLOL SUCCINATE
     Indication: Product used for unknown indication
     Dosage: UNK UNK, QD (PM (1 EVENING))
     Route: 065
  6. CALCITRIOL [Concomitant]
     Active Substance: CALCITRIOL
     Indication: Product used for unknown indication
     Dosage: 2 DOSAGE FORM, QD(2 DOSAGE FORM, AM (2 IN MORNING))
     Route: 065
  7. CALCITRIOL [Concomitant]
     Active Substance: CALCITRIOL
     Dosage: 0.2 MICROGRAM, QD (0.25 UG,DAILY (2 IN MORNING))
     Route: 065
  8. SERTRALINE HYDROCHLORIDE [Concomitant]
     Active Substance: SERTRALINE HYDROCHLORIDE
     Indication: Depression
     Dosage: UNK
     Route: 065
  9. DOXAZOSIN [Concomitant]
     Active Substance: DOXAZOSIN MESYLATE
     Indication: Product used for unknown indication
     Dosage: 2 DOSAGE FORM, QD(PM (2 EVENING)),TABLET (UNCOATED, ORAL)
     Route: 048
  10. AMLODIPIN ABZ [Concomitant]
     Indication: Product used for unknown indication
     Dosage: UNK, QD,HS (1 AT NOON),TABLET (UNCOATED, ORAL)
     Route: 065
  11. RETACRIT [Concomitant]
     Active Substance: EPOETIN ALFA-EPBX
     Indication: Product used for unknown indication
     Dosage: UNK, MONDAY AND FRIDAY
     Route: 042
  12. PRAVASTATIN 1A PHARMA GMBH [Concomitant]
     Indication: Product used for unknown indication
     Dosage: 1 DOSAGE FORM, QD,PM (1 EVENING) (TABLET (UNCOATED, ORAL))
     Route: 048
  13. PRAVASTATIN 1A PHARMA GMBH [Concomitant]
     Dosage: UNK (DAILY (1 EVENING))
     Route: 048
  14. Nepresol [Concomitant]
     Indication: Product used for unknown indication
     Dosage: UNK (DAILY (2 EVENING))
     Route: 048
  15. PANTOPRAZOL MICRO [Concomitant]
     Indication: Product used for unknown indication
     Dosage: UNK UNK, QD,UNK, BID (1 MORNING 1 EVENING) (TABLET (UNCOATED))
     Route: 048
  16. CPS [Concomitant]
     Indication: Product used for unknown indication
     Dosage: UNK,UP TO 8 SACHETS PER DAY TO THE MEAL
     Route: 065
  17. CHOLECALCIFEROL [Concomitant]
     Active Substance: CHOLECALCIFEROL
     Indication: Product used for unknown indication
     Dosage: UNK
     Route: 065
  18. DREISAVIT N [Concomitant]
     Indication: Product used for unknown indication
     Dosage: UNK UNK, QD (PM (1 EVENING))
     Route: 065
  19. METAMIZOLE SODIUM [Concomitant]
     Active Substance: METAMIZOLE SODIUM
     Indication: Product used for unknown indication
     Dosage: UNK UNK, PRN (ORAL DROPS)
     Route: 065
  20. ASPIRIN [Concomitant]
     Active Substance: ASPIRIN
     Indication: Product used for unknown indication
     Dosage: UNK UNK, QD,AM (1 AT MORNING)
     Route: 065
  21. RENVELA [Concomitant]
     Active Substance: SEVELAMER CARBONATE
     Indication: Product used for unknown indication
     Dosage: UNK,STRENGTH:800MG,TABLET (UNCOATED, ORAL)
     Route: 048
  22. RENVELA [Concomitant]
     Active Substance: SEVELAMER CARBONATE
     Dosage: UNK, QD,2.4 G,UNK, AM (2 IN MORNING),SYRUP
     Route: 065
  23. SODIUM BICARBONATE [Concomitant]
     Active Substance: SODIUM BICARBONATE
     Indication: Product used for unknown indication
     Dosage: UNK,2-0-2 SATURDAY AND SUNDAY,TABLET (UNCOATED)
     Route: 048
  24. PREDNISONE [Concomitant]
     Active Substance: PREDNISONE
     Indication: Product used for unknown indication
     Dosage: UNK UNK, AM (1 AT MORNING)
     Route: 065

REACTIONS (11)
  - Diabetes mellitus [Unknown]
  - Decreased interest [Unknown]
  - Depression [Unknown]
  - Job dissatisfaction [Unknown]
  - Anxiety disorder [Unknown]
  - Anhedonia [Unknown]
  - Chronic kidney disease [Unknown]
  - Mental impairment [Not Recovered/Not Resolved]
  - Fear of disease [Not Recovered/Not Resolved]
  - Product contamination [Unknown]
  - Quality of life decreased [Not Recovered/Not Resolved]

NARRATIVE: CASE EVENT DATE: 20180101
